FAERS Safety Report 6447406-7 (Version None)
Quarter: 2009Q4

REPORT INFORMATION
  Report Type: 
  Country: None (occurrence: None)
  Receive Date: 20091119
  Receipt Date: 20091111
  Transmission Date: 20100525
  Serious: Yes (Congenital Anomaly)
  Sender: FDA-Public Use
  Company Number: GB-ASTRAZENECA-2009SE26045

PATIENT

DRUGS (1)
  1. QUETIAPINE [Suspect]
     Indication: POST-TRAUMATIC STRESS DISORDER
     Route: 064
     Dates: start: 20080801

REACTIONS (2)
  - CONGENITAL AORTIC ANOMALY [None]
  - VENTRICULAR SEPTAL DEFECT [None]
